FAERS Safety Report 18366880 (Version 1)
Quarter: 2020Q4

REPORT INFORMATION
  Report Type: Spontaneous
  Country: FR (occurrence: FR)
  Receive Date: 20201009
  Receipt Date: 20201009
  Transmission Date: 20210114
  Serious: Yes (Hospitalization)
  Sender: FDA-Public Use
  Company Number: FR-BAYER-2020-212566

PATIENT
  Age: 66 Year
  Sex: Male

DRUGS (6)
  1. ALEVE [Suspect]
     Active Substance: NAPROXEN SODIUM
     Indication: SCIATICA
     Dosage: NON RENSEIGNEE
     Route: 048
     Dates: start: 20200519, end: 20200529
  2. VELMETIA [Suspect]
     Active Substance: METFORMIN\SITAGLIPTIN
     Indication: TYPE 2 DIABETES MELLITUS
     Dosage: NON RENSEIGNEE
     Route: 048
     Dates: end: 20200529
  3. TRIATEC [RAMIPRIL] [Suspect]
     Active Substance: RAMIPRIL
     Indication: HYPERTENSION
     Dosage: NON RENSEIGNEE
     Dates: end: 20200529
  4. ZYLORIC [Concomitant]
     Active Substance: ALLOPURINOL
     Dosage: NON RENSEIGNEE
     Route: 048
  5. BISOPROLOL [BISOPROLOL FUMARATE] [Concomitant]
     Active Substance: BISOPROLOL FUMARATE
     Dosage: NON RENSEIGNEE
     Route: 048
  6. DIAMICRON [Concomitant]
     Active Substance: GLICLAZIDE
     Dosage: NON RENSEIGNEE
     Route: 048
     Dates: end: 20200529

REACTIONS (1)
  - Acute kidney injury [Recovering/Resolving]

NARRATIVE: CASE EVENT DATE: 20200529
